FAERS Safety Report 5872219-4 (Version None)
Quarter: 2008Q3

REPORT INFORMATION
  Report Type: 
  Country: None (occurrence: None)
  Receive Date: 20080905
  Receipt Date: 20080827
  Transmission Date: 20090109
  Serious: Yes (Life-Threatening, Hospitalization, Other)
  Sender: FDA-Public Use
  Company Number: JP-ABBOTT-08P-087-0453677-00

PATIENT
  Sex: Female

DRUGS (9)
  1. CEFDINIR [Suspect]
     Indication: ACUTE TONSILLITIS
     Route: 048
     Dates: start: 20080518, end: 20080518
  2. LOXOPROFEN [Suspect]
     Indication: ACUTE TONSILLITIS
     Route: 048
     Dates: start: 20080518, end: 20080518
  3. DICLOFENAC [Suspect]
     Indication: ACUTE TONSILLITIS
     Dosage: UID, DAILY
     Route: 054
     Dates: start: 20080518, end: 20080518
  4. TEPRENONE [Suspect]
     Indication: GASTRITIS
     Route: 048
     Dates: start: 20080518, end: 20080518
  5. DICKININ [Suspect]
     Indication: HEADACHE
     Route: 048
     Dates: start: 20080515, end: 20080518
  6. BUFFERIN [Concomitant]
     Indication: DRUG USE FOR UNKNOWN INDICATION
     Dosage: FORMULATION UNKNOWN
     Dates: start: 20080515, end: 20080518
  7. NARON ACE [Concomitant]
     Indication: DRUG USE FOR UNKNOWN INDICATION
     Dosage: FORMULATION UNKNOWN
     Dates: start: 20080515, end: 20080518
  8. STEROID [Concomitant]
     Indication: DRUG USE FOR UNKNOWN INDICATION
     Dosage: FORMULATION UNKNOWN
     Dates: start: 20080521, end: 20080523
  9. IMMUNE GLOBULIN INTRAVENOUS (HUMAN) [Concomitant]
     Indication: DRUG USE FOR UNKNOWN INDICATION
     Dosage: FORMULATION UNKNOWN
     Dates: start: 20080522, end: 20080527

REACTIONS (8)
  - DYSPNOEA [None]
  - FEELING ABNORMAL [None]
  - LIP SWELLING [None]
  - PHARYNGEAL OEDEMA [None]
  - PULMONARY VALVE STENOSIS [None]
  - SEPSIS [None]
  - TOXIC EPIDERMAL NECROLYSIS [None]
  - WHEEZING [None]
